FAERS Safety Report 21079696 (Version 1)
Quarter: 2022Q3

REPORT INFORMATION
  Report Type: Spontaneous
  Country: US (occurrence: US)
  Receive Date: 20220714
  Receipt Date: 20220714
  Transmission Date: 20221027
  Serious: No
  Sender: FDA-Public Use
  Company Number: US-ENDO PHARMACEUTICALS INC-2021-013280

PATIENT
  Sex: Male

DRUGS (1)
  1. COLY-MYCIN S [Suspect]
     Active Substance: COLISTIN SULFATE\HYDROCORTISONE ACETATE\NEOMYCIN SULFATE\THONZONIUM BROMIDE
     Indication: Product used for unknown indication
     Dosage: UNK UNKNOWN, UNKNOWN (10 ML FOR 10 DAYS)
     Route: 065

REACTIONS (1)
  - Therapeutic response decreased [Unknown]
